FAERS Safety Report 17245916 (Version 1)
Quarter: 2019Q4

REPORT INFORMATION
  Report Type: Spontaneous
  Country: US (occurrence: US)
  Receive Date: 20191213
  Receipt Date: 20191213
  Transmission Date: 20200122
  Serious: No
  Sender: FDA-Public Use
  Company Number: None

PATIENT
  Sex: Female

DRUGS (10)
  1. VITAMIN B12 [Concomitant]
     Active Substance: CYANOCOBALAMIN
  2. DETROL LA [Concomitant]
     Active Substance: TOLTERODINE TARTRATE
  3. LIPITOR [Concomitant]
     Active Substance: ATORVASTATIN CALCIUM
  4. DUEXIS [Concomitant]
     Active Substance: FAMOTIDINE\IBUPROFEN
  5. CLOBETASOL [Concomitant]
     Active Substance: CLOBETASOL
  6. VITAMIN D3 [Concomitant]
     Active Substance: CHOLECALCIFEROL
  7. CYMBALTA [Concomitant]
     Active Substance: DULOXETINE HYDROCHLORIDE
  8. LEFLUNOMIDE. [Concomitant]
     Active Substance: LEFLUNOMIDE
  9. HUMIRA [Suspect]
     Active Substance: ADALIMUMAB
     Indication: RHEUMATOID ARTHRITIS
     Route: 058
     Dates: start: 20170525
  10. NOVOLOG [Concomitant]
     Active Substance: INSULIN ASPART

REACTIONS (2)
  - Therapy cessation [None]
  - Surgery [None]
